FAERS Safety Report 4709506-9 (Version None)
Quarter: 2005Q3

REPORT INFORMATION
  Report Type: 
  Country: None (occurrence: None)
  Receive Date: 20050706
  Receipt Date: 20050623
  Transmission Date: 20060218
  Serious: Yes (Hospitalization, Other)
  Sender: FDA-Public Use
  Company Number: 2005092398

PATIENT
  Age: 62 Year
  Sex: Female

DRUGS (5)
  1. LIPITOR [Suspect]
     Indication: HYPERCHOLESTEROLAEMIA
     Dosage: 10 MG (DAILY),ORAL
     Route: 048
     Dates: start: 20041001
  2. CLARITHROMYCIN [Suspect]
     Indication: UPPER RESPIRATORY TRACT INFLAMMATION
     Dosage: 400 MG (1 IN 1 D), ORAL
     Route: 048
     Dates: start: 20050602, end: 20050607
  3. RABEPRAZOLE SODIUM [Concomitant]
  4. .................. [Concomitant]
  5. RABEPRAZOLE SODIUM [Concomitant]

REACTIONS (8)
  - ALANINE AMINOTRANSFERASE INCREASED [None]
  - ASPARTATE AMINOTRANSFERASE INCREASED [None]
  - ASTHENIA [None]
  - FATIGUE [None]
  - HEPATIC FUNCTION ABNORMAL [None]
  - MYOPATHY TOXIC [None]
  - NASOPHARYNGITIS [None]
  - RHABDOMYOLYSIS [None]
